FAERS Safety Report 8202603-5 (Version None)
Quarter: 2012Q1

REPORT INFORMATION
  Report Type: 
  Country: None (occurrence: None)
  Receive Date: 20120312
  Receipt Date: 20120305
  Transmission Date: 20120608
  Serious: Yes (Hospitalization)
  Sender: FDA-Public Use
  Company Number: US-US-EMD SERONO, INC.-7018270

PATIENT
  Sex: Female
  Weight: 73 kg

DRUGS (11)
  1. METOPROLOL SUCCINATE [Concomitant]
     Indication: HYPERTENSION
  2. POTASSIUM [Concomitant]
     Indication: HYPERTENSION
  3. SIMVASTATIN [Concomitant]
     Indication: BLOOD CHOLESTEROL INCREASED
  4. GABAPENTIN [Concomitant]
  5. CYMBALTA [Concomitant]
  6. LISINOPRIL [Concomitant]
     Indication: HYPERTENSION
  7. CLONAZEPAM [Concomitant]
  8. REBIF [Suspect]
     Indication: MULTIPLE SCLEROSIS
     Route: 058
     Dates: start: 20020626, end: 20090101
  9. REBIF [Suspect]
     Route: 058
     Dates: start: 20090501
  10. BACLOFEN [Concomitant]
  11. CRESTOR [Concomitant]
     Indication: BLOOD CHOLESTEROL INCREASED

REACTIONS (4)
  - MEMORY IMPAIRMENT [None]
  - CORONARY ARTERY OCCLUSION [None]
  - SCAR [None]
  - MYOCARDIAL INFARCTION [None]
